FAERS Safety Report 11712253 (Version 1)
Quarter: 2015Q4

REPORT INFORMATION
  Report Type: Spontaneous
  Country: US (occurrence: US)
  Receive Date: 20151104
  Receipt Date: 20151104
  Transmission Date: 20160304
  Serious: No
  Sender: FDA-Public Use
  Company Number: US-ELI_LILLY_AND_COMPANY-US201107002008

PATIENT
  Age: 73 Year
  Sex: Female

DRUGS (2)
  1. FORTEO [Suspect]
     Active Substance: TERIPARATIDE
     Indication: OSTEOPOROSIS
     Dosage: 20 UG, QD
     Dates: start: 201103
  2. DELSYM [Concomitant]
     Active Substance: DEXTROMETHORPHAN
     Indication: COUGH

REACTIONS (10)
  - Gastroenteritis viral [Recovering/Resolving]
  - Injection site bruising [Recovered/Resolved]
  - Frequent bowel movements [Recovering/Resolving]
  - Bronchitis [Unknown]
  - Hypophagia [Recovering/Resolving]
  - Laryngitis [Unknown]
  - Rhinorrhoea [Unknown]
  - Back pain [Unknown]
  - Asthenia [Recovering/Resolving]
  - Urinary tract infection [Unknown]

NARRATIVE: CASE EVENT DATE: 201106
